FAERS Safety Report 16990163 (Version 1)
Quarter: 2019Q4

REPORT INFORMATION
  Report Type: Spontaneous
  Country: US (occurrence: US)
  Receive Date: 20191104
  Receipt Date: 20191104
  Transmission Date: 20200122
  Serious: No
  Sender: FDA-Public Use
  Company Number: US-009507513-1910USA016528

PATIENT
  Sex: Female

DRUGS (2)
  1. NUVARING [Suspect]
     Active Substance: ETHINYL ESTRADIOL\ETONOGESTREL
     Dosage: 1 RING EVERY MONTH AS DIRECTED
     Route: 067
  2. NUVARING [Suspect]
     Active Substance: ETHINYL ESTRADIOL\ETONOGESTREL

REACTIONS (5)
  - Product storage error [Unknown]
  - Product quality issue [Unknown]
  - No adverse event [Unknown]
  - Device expulsion [Unknown]
  - Device physical property issue [Unknown]

NARRATIVE: CASE EVENT DATE: 20191021
